FAERS Safety Report 6145545-1 (Version None)
Quarter: 2009Q2

REPORT INFORMATION
  Report Type: 
  Country: None (occurrence: None)
  Receive Date: 20090402
  Receipt Date: 20090318
  Transmission Date: 20091009
  Serious: Yes (Hospitalization)
  Sender: FDA-Public Use
  Company Number: DSA_33425_2009

PATIENT
  Sex: Male

DRUGS (10)
  1. DILTIAZEM [Suspect]
     Indication: DRUG USE FOR UNKNOWN INDICATION
     Dosage: (30 MG TID ORAL)
     Route: 048
     Dates: start: 20090120
  2. DIGOXIN [Suspect]
     Indication: DRUG USE FOR UNKNOWN INDICATION
     Dosage: (0.25 MG QD ORAL)
     Route: 048
     Dates: start: 20090118, end: 20090120
  3. ASPIRIN [Concomitant]
  4. SORTIS /01326102/ [Concomitant]
  5. BELOC /00376902/ [Concomitant]
  6. ENALAPRIL [Concomitant]
  7. GLUCOPHAGE [Concomitant]
  8. EUTHYROX [Concomitant]
  9. CLEXANE [Concomitant]
  10. SINTROM [Concomitant]

REACTIONS (5)
  - FALL [None]
  - LOSS OF CONSCIOUSNESS [None]
  - MALAISE [None]
  - URINARY INCONTINENCE [None]
  - VENTRICULAR TACHYCARDIA [None]
